APPROVED DRUG PRODUCT: INBRIJA
Active Ingredient: LEVODOPA
Strength: 42MG
Dosage Form/Route: POWDER;INHALATION
Application: N209184 | Product #001
Applicant: MERZ PHARMACEUTICALS LLC
Approved: Dec 21, 2018 | RLD: Yes | RS: Yes | Type: RX

PATENTS:
Patent 12458615 | Expires: Oct 21, 2033
Patent RE43711 | Expires: Feb 3, 2029
Patent 8685442 | Expires: Nov 16, 2032
Patent 8945612 | Expires: Nov 16, 2032
Patent 8545878 | Expires: Nov 16, 2032
Patent 9393210 | Expires: Nov 16, 2032